FAERS Safety Report 18511522 (Version 2)
Quarter: 2020Q4

REPORT INFORMATION
  Report Type: Spontaneous
  Country: JP (occurrence: JP)
  Receive Date: 20201117
  Receipt Date: 20201218
  Transmission Date: 20210114
  Serious: Yes (Death, Life-Threatening, Other)
  Sender: FDA-Public Use
  Company Number: JP-SUNOVION-2020DSP014515

PATIENT
  Age: 54 Year
  Sex: Female
  Weight: 77 kg

DRUGS (9)
  1. LATUDA [Suspect]
     Active Substance: LURASIDONE HYDROCHLORIDE
     Indication: HALLUCINATION
     Dosage: 40 MG, QD
     Route: 048
     Dates: start: 20200722
  2. SERENACE [Suspect]
     Active Substance: HALOPERIDOL
     Indication: SCHIZOPHRENIA
     Dosage: 3 MG, QID
     Route: 048
     Dates: start: 20201019, end: 20201023
  3. LATUDA [Suspect]
     Active Substance: LURASIDONE HYDROCHLORIDE
     Dosage: 40 MG, QD
     Route: 048
     Dates: start: 20201019, end: 20201019
  4. OLANZAPINE. [Concomitant]
     Active Substance: OLANZAPINE
     Indication: SCHIZOPHRENIA
     Dosage: 10 MG, BID
     Route: 048
     Dates: start: 20201019, end: 20201028
  5. SERENACE [Suspect]
     Active Substance: HALOPERIDOL
     Dosage: 3 MG, TID
     Route: 048
     Dates: start: 20201024, end: 20201028
  6. RISPERIDONE. [Concomitant]
     Active Substance: RISPERIDONE
     Indication: SCHIZOPHRENIA
     Dosage: 2 MG, QID
     Route: 048
     Dates: start: 20201019, end: 20201023
  7. ETIZOLAM [Concomitant]
     Active Substance: ETIZOLAM
     Indication: NEUROLEPTIC MALIGNANT SYNDROME
     Dosage: 1 MG, TID
     Route: 048
     Dates: start: 20201026, end: 20201028
  8. LATUDA [Suspect]
     Active Substance: LURASIDONE HYDROCHLORIDE
     Indication: DELUSION
     Dosage: 60 MG, QD
     Route: 048
     Dates: start: 20201010
  9. RISPERIDONE. [Concomitant]
     Active Substance: RISPERIDONE
     Dosage: 2 MG, TID
     Route: 048
     Dates: start: 20201024, end: 20201028

REACTIONS (9)
  - Blood creatine phosphokinase increased [Fatal]
  - Neuroleptic malignant syndrome [Unknown]
  - Hyperhidrosis [Recovered/Resolved]
  - Restlessness [Unknown]
  - Myocardial infarction [Fatal]
  - Tachycardia [Unknown]
  - Altered state of consciousness [Recovered/Resolved]
  - Urinary incontinence [Unknown]
  - White blood cell count increased [Fatal]

NARRATIVE: CASE EVENT DATE: 20201024
